FAERS Safety Report 8603035-8 (Version None)
Quarter: 2012Q3

REPORT INFORMATION
  Report Type: 
  Country: None (occurrence: None)
  Receive Date: 20120817
  Receipt Date: 20120614
  Transmission Date: 20120928
  Serious: No
  Sender: FDA-Public Use
  Company Number: US-GLAXOSMITHKLINE-A0982036A

PATIENT
  Age: 69 Year
  Sex: Female
  Weight: 77 kg

DRUGS (9)
  1. LISINOPRIL AND HYDROCHLOROTHIAZIDE [Concomitant]
  2. MACROBID [Concomitant]
  3. CHEMOTHERAPY [Concomitant]
  4. ANTIBIOTIC [Suspect]
     Indication: PRODUCT USED FOR UNKNOWN INDICATION
  5. SYNTHROID [Concomitant]
  6. VOTRIENT [Suspect]
     Indication: RENAL CANCER
     Dosage: 800MG PER DAY
     Route: 048
     Dates: start: 20111017
  7. COUMADIN [Concomitant]
  8. METOPROLOL TARTRATE [Concomitant]
  9. CIPROFLOXACIN HCL [Concomitant]

REACTIONS (4)
  - URINARY TRACT INFECTION [None]
  - PLATELET COUNT DECREASED [None]
  - DISEASE PROGRESSION [None]
  - DIARRHOEA [None]
